FAERS Safety Report 20430069 (Version 1)
Quarter: 2022Q1

REPORT INFORMATION
  Report Type: Report from Study
  Country: FR (occurrence: FR)
  Receive Date: 20220204
  Receipt Date: 20220204
  Transmission Date: 20220423
  Serious: Yes (Hospitalization, Other)
  Sender: FDA-Public Use
  Company Number: FR-SERVIER-S20001565

PATIENT

DRUGS (10)
  1. PEGASPARGASE [Suspect]
     Active Substance: PEGASPARGASE
     Indication: Acute lymphocytic leukaemia
     Dosage: 1200 IU, QD, D4
     Route: 042
     Dates: start: 20191209
  2. VINCRISTINE [Suspect]
     Active Substance: VINCRISTINE
     Indication: Acute lymphocytic leukaemia
     Dosage: 0.7 MG, D1, D8, D15, D43, D50
     Route: 042
     Dates: start: 20191206
  3. CYCLOPHOSPHAMIDE [Suspect]
     Active Substance: CYCLOPHOSPHAMIDE
     Indication: Acute lymphocytic leukaemia
     Dosage: 500 MG, D29
     Route: 042
     Dates: start: 20200106
  4. ADRIAMYCIN [Suspect]
     Active Substance: DOXORUBICIN HYDROCHLORIDE
     Indication: Acute lymphocytic leukaemia
     Dosage: 12.4 MG, D1, D8, D15
     Route: 042
     Dates: start: 20191206
  5. CYTARABINE [Suspect]
     Active Substance: CYTARABINE
     Indication: Acute lymphocytic leukaemia
     Dosage: 25 MG, D31 TO D34, D38 TO D41
     Route: 037
     Dates: start: 20191209
  6. CYTARABINE [Suspect]
     Active Substance: CYTARABINE
     Dosage: 37 MG, D31 TO D34
     Route: 042
     Dates: start: 20200108
  7. THIOGUANINE [Suspect]
     Active Substance: THIOGUANINE
     Indication: Acute lymphocytic leukaemia
     Dosage: 30 MG, D29 TO D42
     Route: 048
     Dates: start: 20200106
  8. TN UNSPECIFIED [Concomitant]
     Indication: Acute lymphocytic leukaemia
     Dosage: 4.8 MG, D15 TO D21
     Route: 048
     Dates: start: 20191206
  9. TN UNSPECIFIED [Concomitant]
     Indication: Acute lymphocytic leukaemia
     Dosage: 10 MG,D4, D31
     Route: 037
     Dates: start: 20191209
  10. TN UNSPECIFIED [Concomitant]
     Indication: Acute lymphocytic leukaemia
     Dosage: 13 MG, D4, D31
     Route: 037
     Dates: start: 20191209

REACTIONS (4)
  - Venoocclusive liver disease [Recovered/Resolved]
  - Pancreatitis acute [Recovered/Resolved]
  - Hypofibrinogenaemia [Recovered/Resolved]
  - Hyperbilirubinaemia [Recovered/Resolved]

NARRATIVE: CASE EVENT DATE: 20191217
